FAERS Safety Report 7492787-9 (Version None)
Quarter: 2011Q2

REPORT INFORMATION
  Report Type: 
  Country: None (occurrence: None)
  Receive Date: 20110519
  Receipt Date: 20110516
  Transmission Date: 20111010
  Serious: No
  Sender: FDA-Public Use
  Company Number: US-BAYER-2011-041974

PATIENT
  Age: 85 Year
  Sex: Male

DRUGS (1)
  1. AVELOX [Suspect]
     Indication: CELLULITIS
     Dosage: 400 MG, QD
     Route: 048
     Dates: start: 20110508, end: 20110512

REACTIONS (3)
  - URTICARIA [None]
  - PRURITUS [None]
  - CONSCIOUSNESS FLUCTUATING [None]
